FAERS Safety Report 6779026-9 (Version None)
Quarter: 2010Q2

REPORT INFORMATION
  Report Type: 
  Country: None (occurrence: None)
  Receive Date: 20100618
  Receipt Date: 20100616
  Transmission Date: 20101027
  Serious: Yes (Hospitalization, Other)
  Sender: FDA-Public Use
  Company Number: US-RB-010899-10

PATIENT
  Age: 34 Year
  Sex: Female

DRUGS (3)
  1. SUBUTEX [Suspect]
     Indication: DRUG USE FOR UNKNOWN INDICATION
     Dosage: UNKNOWN DOSING DETAILS
     Route: 065
  2. SUBOXONE [Suspect]
     Route: 060
     Dates: start: 20100603, end: 20100608
  3. XANAX [Suspect]
     Indication: ANXIETY
     Dosage: DOSING DETAILS UNKNOWN
     Route: 065
     Dates: end: 20100608

REACTIONS (28)
  - BLOOD PRESSURE FLUCTUATION [None]
  - CHILLS [None]
  - CONSTIPATION [None]
  - CONVULSION [None]
  - DIARRHOEA [None]
  - DRY MOUTH [None]
  - FEELING ABNORMAL [None]
  - HALLUCINATION [None]
  - HEAD INJURY [None]
  - HEADACHE [None]
  - HYPERHIDROSIS [None]
  - INCOHERENT [None]
  - LOGORRHOEA [None]
  - LOSS OF CONSCIOUSNESS [None]
  - MOUTH HAEMORRHAGE [None]
  - MYOCARDIAL INFARCTION [None]
  - NASOPHARYNGITIS [None]
  - NAUSEA [None]
  - NICOTINE DEPENDENCE [None]
  - PALPITATIONS [None]
  - PARANOIA [None]
  - PYREXIA [None]
  - RHINORRHOEA [None]
  - SLEEP DISORDER [None]
  - SNEEZING [None]
  - TACHYCARDIA [None]
  - TACHYPHRENIA [None]
  - THINKING ABNORMAL [None]
